FAERS Safety Report 12039576 (Version 1)
Quarter: 2016Q1

REPORT INFORMATION
  Report Type: Spontaneous
  Country: US (occurrence: None)
  Receive Date: 20160205
  Receipt Date: 20160205
  Transmission Date: 20160526
  Serious: Yes (Life-Threatening, Hospitalization)
  Sender: FDA-Public Use
  Company Number: None

PATIENT
  Age: 15 Year
  Sex: Female
  Weight: 48.08 kg

DRUGS (1)
  1. TORADOL [Suspect]
     Active Substance: KETOROLAC TROMETHAMINE
     Indication: HEADACHE
     Dosage: 30MG/ML NOW STAT
     Route: 030
     Dates: start: 20160203, end: 20160203

REACTIONS (3)
  - Dyskinesia [None]
  - Hypotension [None]
  - Bradycardia [None]

NARRATIVE: CASE EVENT DATE: 20160203
